FAERS Safety Report 8255131-5 (Version None)
Quarter: 2012Q2

REPORT INFORMATION
  Report Type: 
  Country: None (occurrence: None)
  Receive Date: 20120403
  Receipt Date: 20120322
  Transmission Date: 20120825
  Serious: Yes (Other)
  Sender: FDA-Public Use
  Company Number: DE-UCBSA-053972

PATIENT
  Sex: Male

DRUGS (2)
  1. LEVETIRACETAM [Suspect]
  2. VIMPAT [Suspect]

REACTIONS (1)
  - RASH GENERALISED [None]
